FAERS Safety Report 11174874 (Version 2)
Quarter: 2015Q2

REPORT INFORMATION
  Report Type: Report from Study
  Country: BR (occurrence: BR)
  Receive Date: 20150609
  Receipt Date: 20150615
  Transmission Date: 20150821
  Serious: Yes (Life-Threatening, Other)
  Sender: FDA-Public Use
  Company Number: BR-BRISTOL-MYERS SQUIBB COMPANY-BMS-2015-036438

PATIENT
  Sex: Male
  Weight: 73 kg

DRUGS (3)
  1. OMEPRAZOLE. [Concomitant]
     Active Substance: OMEPRAZOLE
     Indication: GASTROINTESTINAL DISORDER
     Route: 048
  2. CETUXIMAB [Suspect]
     Active Substance: CETUXIMAB
     Indication: COLORECTAL CANCER
     Dosage: UNK, Q2WK
     Route: 042
     Dates: start: 201502
  3. ENALAPRIL [Concomitant]
     Active Substance: ENALAPRIL
     Indication: BLOOD PRESSURE
     Route: 048

REACTIONS (8)
  - Headache [Recovered/Resolved]
  - Skin reaction [Unknown]
  - Anaphylactic shock [Recovered/Resolved]
  - Asthenia [Recovered/Resolved]
  - Onychoclasis [Unknown]
  - Dermatitis allergic [Recovering/Resolving]
  - Diarrhoea [Not Recovered/Not Resolved]
  - Gait disturbance [Recovered/Resolved]
